FAERS Safety Report 15057893 (Version 1)
Quarter: 2018Q2

REPORT INFORMATION
  Report Type: Report from Study
  Country: MX (occurrence: MX)
  Receive Date: 20180625
  Receipt Date: 20180625
  Transmission Date: 20180711
  Serious: Yes (Death)
  Sender: FDA-Public Use
  Company Number: MX-UCBSA-2017022567

PATIENT
  Age: 2 Year
  Sex: Female
  Weight: 13.5 kg

DRUGS (3)
  1. LEVETIRACETAM. [Suspect]
     Active Substance: LEVETIRACETAM
     Dosage: 5 ML, 2X/DAY (BID)
     Route: 048
     Dates: start: 2017, end: 201711
  2. VALPROIC ACID. [Concomitant]
     Active Substance: VALPROIC ACID
     Indication: SEIZURE
     Dosage: 3.5 ML, 2X/DAY (BID)
     Dates: start: 201703
  3. LEVETIRACETAM. [Suspect]
     Active Substance: LEVETIRACETAM
     Indication: EPILEPSY
     Dosage: 100MG/ML; 3.5ML/12 HRS
     Route: 048
     Dates: start: 201703, end: 2017

REACTIONS (3)
  - Nervous system disorder [Fatal]
  - Seizure [Fatal]
  - Off label use [Unknown]

NARRATIVE: CASE EVENT DATE: 201703
